FAERS Safety Report 6667084-1 (Version None)
Quarter: 2010Q2

REPORT INFORMATION
  Report Type: 
  Country: None (occurrence: None)
  Receive Date: 20100402
  Receipt Date: 20100402
  Transmission Date: 20101027
  Serious: No
  Sender: FDA-Public Use
  Company Number: None

PATIENT
  Age: 49 Year
  Sex: Male
  Weight: 68.0396 kg

DRUGS (2)
  1. ZOCOR [Suspect]
     Indication: BLOOD CHOLESTEROL INCREASED
     Dosage: 10 MG NIGHTLY 6 YEARS; 4 MONTHS
     Dates: start: 19990101, end: 20050122
  2. ZOCOR [Suspect]
     Indication: BLOOD CHOLESTEROL INCREASED
     Dosage: 10 MG NIGHTLY 6 YEARS; 4 MONTHS
     Dates: start: 20090212, end: 20100401

REACTIONS (3)
  - MULTIPLE INJURIES [None]
  - MUSCLE DISORDER [None]
  - MUSCLE STRAIN [None]
